FAERS Safety Report 21782489 (Version 1)
Quarter: 2022Q4

REPORT INFORMATION
  Report Type: Spontaneous
  Country: US (occurrence: None)
  Receive Date: 20221223
  Receipt Date: 20221223
  Transmission Date: 20230113
  Serious: No
  Sender: FDA-Public Use
  Company Number: None

PATIENT
  Age: 40 Year
  Sex: Female
  Weight: 78.75 kg

DRUGS (3)
  1. NO DRIP NASAL MIST NASAL DECONGESTANT SEVERE CONGESTION [Suspect]
     Active Substance: OXYMETAZOLINE HYDROCHLORIDE
     Indication: Nasal congestion
     Dosage: OTHER QUANTITY : 1 SPRAY(S);?FREQUENCY : AT BEDTIME;?
     Route: 055
     Dates: start: 20221220, end: 20221222
  2. DOXYCYCLINE [Concomitant]
     Active Substance: DOXYCYCLINE
  3. SUDAFED [Concomitant]
     Active Substance: PSEUDOEPHEDRINE HYDROCHLORIDE

REACTIONS (2)
  - Ageusia [None]
  - Anosmia [None]

NARRATIVE: CASE EVENT DATE: 20221222
